FAERS Safety Report 24327403 (Version 1)
Quarter: 2024Q3

REPORT INFORMATION
  Report Type: Spontaneous
  Country: FR (occurrence: FR)
  Receive Date: 20240917
  Receipt Date: 20240917
  Transmission Date: 20241017
  Serious: Yes (Hospitalization)
  Sender: RANBAXY
  Company Number: FR-SUN PHARMACEUTICAL INDUSTRIES LTD-2024RR-468195

PATIENT
  Age: 79 Year
  Sex: Female
  Weight: 75 kg

DRUGS (1)
  1. VALACYCLOVIR [Suspect]
     Active Substance: VALACYCLOVIR HYDROCHLORIDE
     Indication: Product used for unknown indication
     Dosage: 3 GRAM, DAILY
     Route: 048
     Dates: start: 20240628, end: 20240629

REACTIONS (6)
  - Psychomotor skills impaired [Recovered/Resolved]
  - Confusional state [Recovered/Resolved]
  - Contraindicated product administered [Recovered/Resolved]
  - Dyskinesia [Recovered/Resolved]
  - Hallucination, visual [Recovered/Resolved]
  - Product prescribing error [Recovered/Resolved]

NARRATIVE: CASE EVENT DATE: 20240628
